FAERS Safety Report 15736435 (Version 1)
Quarter: 2018Q4

REPORT INFORMATION
  Report Type: Spontaneous
  Country: US (occurrence: US)
  Receive Date: 20181204
  Receipt Date: 20181204
  Transmission Date: 20190205
  Serious: No
  Sender: FDA-Public Use
  Company Number: None

PATIENT
  Age: 23 Year
  Sex: Female

DRUGS (2)
  1. FENTANYL CITRATE, BUPIVACAINE HCL [Suspect]
     Active Substance: BUPIVACAINE HYDROCHLORIDE\FENTANYL CITRATE
     Indication: INDUCED LABOUR
     Route: 008
     Dates: start: 20181128, end: 20181128
  2. FENTANYL CITRATE, BUPIVACAINE HCL [Suspect]
     Active Substance: BUPIVACAINE HYDROCHLORIDE\FENTANYL CITRATE
     Indication: INDUCED LABOUR
     Route: 008
     Dates: start: 20181128, end: 20181128

REACTIONS (2)
  - Anaesthetic complication [None]
  - Inadequate analgesia [None]

NARRATIVE: CASE EVENT DATE: 20181128
